FAERS Safety Report 5714257-8 (Version None)
Quarter: 2008Q2

REPORT INFORMATION
  Report Type: 
  Country: None (occurrence: None)
  Receive Date: 20080422
  Receipt Date: 20080422
  Transmission Date: 20081010
  Serious: Yes (Hospitalization)
  Sender: FDA-Public Use
  Company Number: None

PATIENT
  Age: 66 Year
  Sex: Male
  Weight: 103.46 kg

DRUGS (2)
  1. WARFARIN SODIUM [Suspect]
     Indication: CORONARY ARTERY DISEASE
     Dosage: 30 MG QWEEK PO
     Route: 048
     Dates: start: 19970101
  2. WARFARIN SODIUM [Suspect]
     Indication: MITRAL VALVE DISEASE
     Dosage: 30 MG QWEEK PO
     Route: 048
     Dates: start: 19970101

REACTIONS (1)
  - POST PROCEDURAL HAEMORRHAGE [None]
